FAERS Safety Report 8613355-9 (Version None)
Quarter: 2012Q3

REPORT INFORMATION
  Report Type: 
  Country: None (occurrence: None)
  Receive Date: 20120822
  Receipt Date: 20120806
  Transmission Date: 20120928
  Serious: Yes (Other)
  Sender: FDA-Public Use
  Company Number: JP-009507513-1208JPN003957

PATIENT

DRUGS (19)
  1. REBETOL [Suspect]
     Route: 048
     Dates: start: 20120613, end: 20120702
  2. PREDNISOLONE [Suspect]
     Route: 048
     Dates: start: 20120618
  3. VITAMEDIN [Concomitant]
     Route: 048
  4. CHLORPROMAZINE HCL [Concomitant]
     Route: 048
  5. PREDNISOLONE [Suspect]
     Route: 048
     Dates: start: 20120620
  6. PEG-INTRON [Suspect]
     Indication: HEPATITIS C
     Dosage: 100MCG/KG/WEEK
     Route: 058
     Dates: start: 20120523, end: 20120627
  7. REBETOL [Suspect]
     Indication: HEPATITIS C
     Route: 048
     Dates: start: 20120523, end: 20120612
  8. TELAVIC [Suspect]
     Indication: HEPATITIS C
     Route: 048
     Dates: start: 20120523, end: 20120525
  9. EPINASTINE HYDROCHLORIDE [Suspect]
     Indication: PROPHYLAXIS
     Route: 048
     Dates: start: 20120523
  10. PREDNISOLONE [Suspect]
     Route: 048
     Dates: start: 20120627, end: 20120704
  11. FOLIC ACID [Concomitant]
     Route: 048
  12. SELBEX [Concomitant]
     Dosage: AS NEEDED
     Route: 048
  13. TELAVIC [Suspect]
     Route: 048
     Dates: start: 20120528, end: 20120702
  14. ALLOPURINOL [Suspect]
     Route: 048
     Dates: start: 20120613, end: 20120702
  15. VOLTAREN [Concomitant]
     Indication: PYREXIA
     Dosage: AS NEEDED
     Route: 048
  16. PREDNISOLONE [Suspect]
     Route: 048
     Dates: start: 20120613
  17. FLUNITRAZEPAM [Concomitant]
     Route: 048
  18. MIYA BM [Concomitant]
     Route: 048
  19. PROHEPARUM [Concomitant]
     Route: 048

REACTIONS (2)
  - PANCREATITIS ACUTE [None]
  - ERYTHEMA [None]
